FAERS Safety Report 23327020 (Version 1)
Quarter: 2023Q4

REPORT INFORMATION
  Report Type: Spontaneous
  Country: US (occurrence: US)
  Receive Date: 20231221
  Receipt Date: 20231221
  Transmission Date: 20240110
  Serious: Yes (Death, Other)
  Sender: FDA-Public Use
  Company Number: US-ORGANON-O2312USA001785

PATIENT
  Age: 86 Year
  Sex: Female

DRUGS (3)
  1. REMERON [Suspect]
     Active Substance: MIRTAZAPINE
     Dosage: UNK
     Route: 065
  2. FENTANYL [Suspect]
     Active Substance: FENTANYL\FENTANYL CITRATE
     Dosage: UNK
     Route: 065
  3. ESTAZOLAM [Suspect]
     Active Substance: ESTAZOLAM
     Dosage: UNK
     Route: 065

REACTIONS (1)
  - Suspected suicide [Fatal]
